FAERS Safety Report 14163459 (Version 1)
Quarter: 2017Q4

REPORT INFORMATION
  Report Type: Spontaneous
  Country: US (occurrence: US)
  Receive Date: 20171106
  Receipt Date: 20171106
  Transmission Date: 20180321
  Serious: No
  Sender: FDA-Public Use
  Company Number: US-BIOGEN-2015BI016648

PATIENT
  Sex: Male

DRUGS (2)
  1. AVONEX [Suspect]
     Active Substance: INTERFERON BETA-1A
     Route: 065
     Dates: start: 20170917
  2. AVONEX [Suspect]
     Active Substance: INTERFERON BETA-1A
     Indication: MULTIPLE SCLEROSIS
     Route: 030
     Dates: start: 20070404, end: 20170827

REACTIONS (6)
  - Peroneal nerve palsy [Not Recovered/Not Resolved]
  - Drug dose omission [Recovered/Resolved]
  - Tinnitus [Not Recovered/Not Resolved]
  - Balance disorder [Recovered/Resolved]
  - Visual impairment [Not Recovered/Not Resolved]
  - Mobility decreased [Recovered/Resolved]
